FAERS Safety Report 24582916 (Version 1)
Quarter: 2024Q4

REPORT INFORMATION
  Report Type: Spontaneous
  Country: US (occurrence: US)
  Receive Date: 20241106
  Receipt Date: 20241106
  Transmission Date: 20250115
  Serious: No
  Sender: UCB
  Company Number: US-UCBSA-2023061210

PATIENT
  Age: 56 Year
  Sex: Male

DRUGS (3)
  1. VIMPAT [Suspect]
     Active Substance: LACOSAMIDE
     Indication: Faciobrachial dystonic seizure
     Dosage: UNK
  2. VIMPAT [Suspect]
     Active Substance: LACOSAMIDE
     Indication: Seizure
  3. VIMPAT [Suspect]
     Active Substance: LACOSAMIDE
     Indication: Off label use

REACTIONS (1)
  - No adverse event [Unknown]
